FAERS Safety Report 11191957 (Version 1)
Quarter: 2015Q2

REPORT INFORMATION
  Report Type: Report from Study
  Country: US (occurrence: US)
  Receive Date: 20150616
  Receipt Date: 20150616
  Transmission Date: 20150821
  Serious: Yes (Hospitalization)
  Sender: FDA-Public Use
  Company Number: US-ROCHE-553174

PATIENT
  Age: 49 Year
  Sex: Female
  Weight: 119 kg

DRUGS (21)
  1. FUROSEMIDE. [Concomitant]
     Active Substance: FUROSEMIDE
     Route: 065
  2. PROTONIX (UNITED STATES) [Concomitant]
     Route: 065
  3. MAG OXIDE [Concomitant]
     Active Substance: MAGNESIUM OXIDE
     Route: 065
  4. PRILOSEC [Concomitant]
     Active Substance: OMEPRAZOLE MAGNESIUM
     Route: 065
  5. MYCOPHENOLATE MOFETIL. [Suspect]
     Active Substance: MYCOPHENOLATE MOFETIL
     Indication: PRODUCT USED FOR UNKNOWN INDICATION
     Dosage: FORM REPORTED AS PILL.
     Route: 048
     Dates: start: 20041020, end: 20080310
  6. RAPAMUNE [Concomitant]
     Active Substance: SIROLIMUS
     Dosage: FORM REPORTED AS PILL.
     Route: 048
     Dates: start: 20041111, end: 20060209
  7. PROTONIX (UNITED STATES) [Concomitant]
     Route: 065
     Dates: start: 20080309, end: 20080312
  8. LISINOPRIL. [Concomitant]
     Active Substance: LISINOPRIL
     Route: 065
  9. K-PHOS NEUTRAL [Concomitant]
     Active Substance: POTASSIUM PHOSPHATE\SODIUM PHOSPHATE
     Route: 065
  10. OSELTAMIVIR [Suspect]
     Active Substance: OSELTAMIVIR
     Indication: ANTIVIRAL PROPHYLAXIS
     Dosage: FREQUENCY DAILY.
     Route: 048
     Dates: start: 20080111, end: 20080309
  11. MEDROL [Concomitant]
     Active Substance: METHYLPREDNISOLONE
     Dosage: FORM REPORTED AS PILL.
     Route: 048
  12. NIFEDIPINE. [Concomitant]
     Active Substance: NIFEDIPINE
     Route: 065
  13. OSELTAMIVIR [Suspect]
     Active Substance: OSELTAMIVIR
     Dosage: FREQUENCY DAILY.
     Route: 048
     Dates: start: 20080312, end: 20080403
  14. MYCOPHENOLATE MOFETIL. [Suspect]
     Active Substance: MYCOPHENOLATE MOFETIL
     Route: 048
  15. LIPITOR [Concomitant]
     Active Substance: ATORVASTATIN CALCIUM
     Route: 065
  16. NEURONTIN [Concomitant]
     Active Substance: GABAPENTIN
     Route: 065
  17. TOPROL XL [Concomitant]
     Active Substance: METOPROLOL SUCCINATE
     Route: 065
  18. ASA [Concomitant]
     Active Substance: ASPIRIN
     Route: 065
  19. NPH INSULIN [Concomitant]
     Active Substance: INSULIN BEEF
     Dosage: DAILY DOSE=88 UNIT
     Route: 065
  20. NOVOLOG [Concomitant]
     Active Substance: INSULIN ASPART
     Dosage: VARIABLE.
     Route: 065
  21. DARVON (UNITED STATES) [Concomitant]
     Dosage: VARIABLE.
     Route: 065

REACTIONS (1)
  - Gastroenteritis [Recovered/Resolved]

NARRATIVE: CASE EVENT DATE: 20080308
